FAERS Safety Report 5159747-4 (Version None)
Quarter: 2006Q4

REPORT INFORMATION
  Report Type: 
  Country: None (occurrence: None)
  Receive Date: 20061129
  Receipt Date: 20051102
  Transmission Date: 20070319
  Serious: No
  Sender: FDA-Public Use
  Company Number: US-GLAXOSMITHKLINE-A0580651A

PATIENT
  Age: 66 Year
  Sex: Male

DRUGS (4)
  1. WELLBUTRIN SR [Suspect]
     Indication: DEPRESSION
     Dosage: 150MG THREE TIMES PER DAY
     Route: 048
     Dates: start: 20020101
  2. VASOTEC [Concomitant]
  3. HYDROCHLOROTHIAZIDE [Concomitant]
  4. VITAMINS [Concomitant]

REACTIONS (3)
  - DEPRESSION [None]
  - MUSCLE TWITCHING [None]
  - SLEEP DISORDER [None]
